FAERS Safety Report 15125645 (Version 1)
Quarter: 2018Q3

REPORT INFORMATION
  Report Type: Spontaneous
  Country: US (occurrence: US)
  Receive Date: 20180710
  Receipt Date: 20180710
  Transmission Date: 20181010
  Serious: Yes (Other)
  Sender: FDA-Public Use
  Company Number: US-MYLANLABS-2016M1019406

PATIENT
  Age: 37 Year
  Sex: Male

DRUGS (1)
  1. MINOCYCLINE [Suspect]
     Active Substance: MINOCYCLINE\MINOCYCLINE HYDROCHLORIDE
     Indication: ACNE
     Route: 065

REACTIONS (7)
  - Gait disturbance [Recovering/Resolving]
  - Muscular weakness [Recovering/Resolving]
  - Rash [Recovering/Resolving]
  - Neuropathy peripheral [Recovering/Resolving]
  - Vasculitis [Recovering/Resolving]
  - Peroneal nerve palsy [Recovering/Resolving]
  - Skin hyperpigmentation [Recovering/Resolving]
